FAERS Safety Report 9627017 (Version 1)
Quarter: 2013Q4

REPORT INFORMATION
  Report Type: Spontaneous
  Country: US (occurrence: None)
  Receive Date: 20131011
  Receipt Date: 20131011
  Transmission Date: 20140711
  Serious: Yes (Hospitalization)
  Sender: FDA-Public Use
  Company Number: 2013P1019822

PATIENT
  Age: 58 Year
  Sex: Female
  Weight: 68.04 kg

DRUGS (9)
  1. DYCYCLOMINE [Suspect]
     Indication: MYALGIA
  2. DYCYCLOMINE [Suspect]
  3. LYRICA (PREGABALIN) [Suspect]
     Dates: start: 201303, end: 201308
  4. NAPROXEN [Suspect]
     Dates: start: 201308
  5. FLEXERIL (CYCLOBENZAPRINE HYDROCHLORIDE) [Suspect]
     Indication: MYALGIA
  6. FLEXERIL (CYCLOBENZAPRINE HYDROCHLORIDE) [Suspect]
  7. LEXAPRO (ESCITALOPRAM OXALATE) [Concomitant]
  8. ATIVAN (LORAZEPAM) [Concomitant]
  9. SEROQUEL (QUETIAPINE FUMARATE) [Concomitant]

REACTIONS (7)
  - Gastrooesophageal reflux disease [None]
  - Back injury [None]
  - Back pain [None]
  - Nerve compression [None]
  - Lumbar spinal stenosis [None]
  - Gastritis erosive [None]
  - Drug ineffective [None]
